FAERS Safety Report 4450952-9 (Version None)
Quarter: 2004Q3

REPORT INFORMATION
  Report Type: 
  Country: None (occurrence: None)
  Receive Date: 20040916
  Receipt Date: 20040109
  Transmission Date: 20050211
  Serious: Yes (Other)
  Sender: FDA-Public Use
  Company Number: US-BRISTOL-MYERS SQUIBB COMPANY-12474110

PATIENT
  Sex: Female

DRUGS (4)
  1. STADOL [Suspect]
  2. SULFAMETHOXAZOLE + TRIMETHOPRIM DS [Concomitant]
  3. VIOXX [Concomitant]
  4. AMOXICILLIN [Concomitant]

REACTIONS (1)
  - DEPENDENCE [None]
